FAERS Safety Report 4391110-6 (Version None)
Quarter: 2004Q3

REPORT INFORMATION
  Report Type: 
  Country: None (occurrence: None)
  Receive Date: 20040707
  Receipt Date: 20040629
  Transmission Date: 20050211
  Serious: Yes (Hospitalization)
  Sender: FDA-Public Use
  Company Number: FR-ROCHE-372550

PATIENT
  Age: 43 Year
  Sex: Female

DRUGS (4)
  1. FUZEON [Suspect]
     Indication: DRUG USE FOR UNKNOWN INDICATION
     Route: 058
  2. ZIAGEN [Concomitant]
  3. RETROVIR [Concomitant]
  4. VIDEX [Concomitant]

REACTIONS (1)
  - TOXIC SKIN ERUPTION [None]
